FAERS Safety Report 17699572 (Version 1)
Quarter: 2020Q2

REPORT INFORMATION
  Report Type: Spontaneous
  Country: DE (occurrence: DE)
  Receive Date: 20200423
  Receipt Date: 20200423
  Transmission Date: 20200714
  Serious: Yes (Hospitalization, Other)
  Sender: FDA-Public Use
  Company Number: NVSC2020DE107584

PATIENT
  Age: 60 Year
  Sex: Male
  Weight: 88 kg

DRUGS (1)
  1. PENHEXAL (PHENOXYMETHYLPENICILLIN POTASSIUM) [Suspect]
     Active Substance: PENICILLIN V POTASSIUM
     Indication: SKIN PAPILLOMA
     Dosage: 3 DF, QD (3X1 TABL. TAGL)
     Route: 048
     Dates: start: 20191107, end: 20191112

REACTIONS (1)
  - Seizure [Recovering/Resolving]

NARRATIVE: CASE EVENT DATE: 20191113
